FAERS Safety Report 4645726-X (Version None)
Quarter: 2005Q2

REPORT INFORMATION
  Report Type: 
  Country: None (occurrence: None)
  Receive Date: 20050425
  Receipt Date: 20050412
  Transmission Date: 20051028
  Serious: Yes (Hospitalization)
  Sender: FDA-Public Use
  Company Number: 2005057946

PATIENT
  Age: 46 Year
  Sex: Female
  Weight: 48.9885 kg

DRUGS (1)
  1. DEPO-PROVERA [Suspect]
     Indication: DYSMENORRHOEA
     Dosage: 150 MG (150 MG, EVERY 3 MONTHS, 1ST INJ.), INTRAMUSCULAR
     Route: 030
     Dates: start: 19920101, end: 19920101

REACTIONS (5)
  - ANGIONEUROTIC OEDEMA [None]
  - IRRITABILITY [None]
  - OEDEMA PERIPHERAL [None]
  - PRURITUS [None]
  - WEIGHT INCREASED [None]
